FAERS Safety Report 11727808 (Version 1)
Quarter: 2015Q4

REPORT INFORMATION
  Report Type: Spontaneous
  Country: VE (occurrence: VE)
  Receive Date: 20151112
  Receipt Date: 20151112
  Transmission Date: 20160304
  Serious: Yes (Hospitalization, Other)
  Sender: FDA-Public Use
  Company Number: VE-PFIZER INC-2015381513

PATIENT
  Age: 30 Year
  Sex: Male

DRUGS (1)
  1. EPAMIN [Suspect]
     Active Substance: PHENYTOIN SODIUM
     Indication: SEIZURE

REACTIONS (2)
  - Altered state of consciousness [Unknown]
  - Head injury [Unknown]
